FAERS Safety Report 20770464 (Version 1)
Quarter: 2022Q2

REPORT INFORMATION
  Report Type: Report from Study
  Country: CO (occurrence: CO)
  Receive Date: 20220429
  Receipt Date: 20220429
  Transmission Date: 20220721
  Serious: Yes (Other)
  Sender: FDA-Public Use
  Company Number: CO-NOVARTISPH-NVSC2021CO237021

PATIENT
  Age: 52 Year
  Sex: Female

DRUGS (3)
  1. KISQALI [Suspect]
     Active Substance: RIBOCICLIB
     Indication: Breast cancer metastatic
     Dosage: UNK
     Route: 048
     Dates: start: 20211006
  2. KISQALI [Suspect]
     Active Substance: RIBOCICLIB
     Dosage: UNK
     Route: 048
  3. FULVESTRANT [Suspect]
     Active Substance: FULVESTRANT
     Indication: Product used for unknown indication
     Dosage: UNK
     Route: 065

REACTIONS (9)
  - Metastases to bone [Unknown]
  - Stress [Unknown]
  - Malaise [Unknown]
  - Hypersensitivity [Unknown]
  - Feeling of despair [Unknown]
  - Arthralgia [Unknown]
  - Pruritus [Unknown]
  - Constipation [Unknown]
  - Pain [Unknown]

NARRATIVE: CASE EVENT DATE: 20211008
